FAERS Safety Report 22295906 (Version 2)
Quarter: 2023Q2

REPORT INFORMATION
  Report Type: Report from Study
  Country: IL (occurrence: IL)
  Receive Date: 20230508
  Receipt Date: 20230515
  Transmission Date: 20230722
  Serious: Yes (Hospitalization)
  Sender: FDA-Public Use
  Company Number: IL-JNJFOC-20210855864

PATIENT
  Age: 77 Year
  Sex: Male
  Weight: 72 kg

DRUGS (24)
  1. BORTEZOMIB [Suspect]
     Active Substance: BORTEZOMIB
     Indication: Plasma cell myeloma
     Dosage: 1.3 MILLIGRAM/SQ. METER, QD
     Route: 058
     Dates: start: 20201227, end: 20210128
  2. CILTACABTAGENE AUTOLEUCEL [Suspect]
     Active Substance: CILTACABTAGENE AUTOLEUCEL
     Indication: Plasma cell myeloma
     Dosage: 0.7 X10^6 CAR POSITIVE VIABLE T CELLS/KG, APHERESIS NUMBER Y20132117
     Route: 042
     Dates: start: 20210511, end: 20210511
  3. DARATUMUMAB [Suspect]
     Active Substance: DARATUMUMAB
     Indication: Plasma cell myeloma
     Dosage: 1800 MILLIGRAM, QD
     Route: 058
     Dates: start: 20201227, end: 20210705
  4. LENALIDOMIDE [Suspect]
     Active Substance: LENALIDOMIDE
     Indication: Plasma cell myeloma
     Dosage: 10 MILLIGRAM, QD
     Route: 048
     Dates: start: 20201227, end: 20210710
  5. DEXAMETHASONE [Suspect]
     Active Substance: DEXAMETHASONE
     Indication: Plasma cell myeloma
     Dosage: 12 MILLIGRAM, QD
     Route: 048
     Dates: start: 20201227, end: 20210105
  6. CYCLOPHOSPHAMIDE [Concomitant]
     Active Substance: CYCLOPHOSPHAMIDE
     Indication: Plasma cell myeloma
     Dosage: 571 MILLIGRAM, QD
     Route: 042
     Dates: start: 20210506, end: 20210508
  7. FLUDARABINE [Concomitant]
     Active Substance: FLUDARABINE PHOSPHATE
     Indication: Plasma cell myeloma
     Dosage: 57 MILLIGRAM, QD
     Route: 042
     Dates: start: 20210506, end: 20210508
  8. SIMVASTATIN [Concomitant]
     Active Substance: SIMVASTATIN
     Indication: Hyperlipidaemia
     Dosage: 20 MILLIGRAM, QD
     Route: 048
  9. SUMATRIPTAN [Concomitant]
     Active Substance: SUMATRIPTAN
     Indication: Migraine
     Dosage: 50 MILLIGRAM
     Route: 048
  10. LYRICA [Concomitant]
     Active Substance: PREGABALIN
     Indication: Peripheral motor neuropathy
     Dosage: 0.75 MILLIGRAM, QD
     Route: 048
     Dates: start: 20210222
  11. LYRICA [Concomitant]
     Active Substance: PREGABALIN
     Indication: Pain in extremity
     Dosage: 300 MILLIGRAM, QD
     Route: 048
     Dates: start: 20210315
  12. DIPYRONE [Concomitant]
     Active Substance: DIPYRONE
     Indication: Peripheral motor neuropathy
     Dosage: 1 GRAM
     Route: 048
     Dates: start: 20210301
  13. DIPYRONE [Concomitant]
     Active Substance: DIPYRONE
     Indication: Polyneuropathy
  14. DIPYRONE [Concomitant]
     Active Substance: DIPYRONE
     Indication: Pain in extremity
  15. OXYCODONE [Concomitant]
     Active Substance: OXYCODONE
     Indication: Peripheral motor neuropathy
     Dosage: 5 MILLIGRAM
     Route: 048
     Dates: start: 20210301
  16. OXYCODONE [Concomitant]
     Active Substance: OXYCODONE
     Indication: Pain in extremity
  17. OXYCODONE [Concomitant]
     Active Substance: OXYCODONE
     Indication: Polyneuropathy
  18. ENOXAPARIN SODIUM [Concomitant]
     Active Substance: ENOXAPARIN SODIUM
     Indication: Deep vein thrombosis
     Dosage: 40 MILLIGRAM, BID
     Route: 058
     Dates: start: 20210513, end: 20210725
  19. PREDNISONE [Concomitant]
     Active Substance: PREDNISONE
     Indication: Diplopia
     Dosage: 55 MILLIGRAM, QD
     Route: 048
     Dates: start: 20210622, end: 20210629
  20. PREDNISONE [Concomitant]
     Active Substance: PREDNISONE
     Indication: Ataxia
     Dosage: 50 MILLIGRAM, QD
     Route: 048
     Dates: start: 20210630, end: 20210705
  21. PREDNISONE [Concomitant]
     Active Substance: PREDNISONE
     Indication: Facial nerve disorder
     Dosage: 45 MILLIGRAM
     Route: 048
     Dates: start: 20210706, end: 20210718
  22. PREDNISONE [Concomitant]
     Active Substance: PREDNISONE
     Indication: Eyelid ptosis
     Dosage: UNK
     Route: 065
  23. AUGMENTIN [Concomitant]
     Active Substance: AMOXICILLIN\CLAVULANATE POTASSIUM
     Indication: Cough
     Dosage: 875 MILLIGRAM, BID
     Route: 048
     Dates: start: 20210702, end: 20210706
  24. AUGMENTIN [Concomitant]
     Active Substance: AMOXICILLIN\CLAVULANATE POTASSIUM
     Indication: Rhinitis

REACTIONS (1)
  - Viral upper respiratory tract infection [Recovered/Resolved]

NARRATIVE: CASE EVENT DATE: 20210710
